FAERS Safety Report 8630857 (Version 13)
Quarter: 2014Q2

REPORT INFORMATION
  Report Type: Report from Study
  Country: CA (occurrence: CA)
  Receive Date: 20120622
  Receipt Date: 20140417
  Transmission Date: 20141212
  Serious: Yes (Death, Hospitalization, Other)
  Sender: FDA-Public Use
  Company Number: PHHY2012CA051771

PATIENT
  Age: 81 Year
  Sex: Male

DRUGS (7)
  1. SANDOSTATIN [Suspect]
     Indication: OCCULT BLOOD
     Dosage: 150 UG, TID
     Route: 058
  2. SANDOSTATIN [Suspect]
     Dosage: UNK UKN, UNK
     Route: 058
  3. SANDOSTATIN [Suspect]
     Dosage: UNK UKN, UNK
     Dates: end: 20121209
  4. SANDOSTATIN LAR [Suspect]
     Indication: OCCULT BLOOD
     Dosage: 30 MG, QMO
     Route: 030
     Dates: start: 20120620
  5. SANDOSTATIN LAR [Suspect]
     Indication: OFF LABEL USE
     Dosage: 20 MG, QMO
     Route: 030
  6. SANDOSTATIN LAR [Suspect]
     Dosage: 30 MG, EVERY FOUR WEEKS
     Route: 030
  7. TYLENOL [Concomitant]
     Dosage: UNK UKN, UNK

REACTIONS (14)
  - Death [Fatal]
  - Septic shock [Unknown]
  - Hypotension [Unknown]
  - Pulmonary oedema [Unknown]
  - Pneumonia [Unknown]
  - Malaise [Unknown]
  - Asthenia [Unknown]
  - Tachycardia [Unknown]
  - Suicidal ideation [Unknown]
  - Haemorrhage [Unknown]
  - Postoperative wound infection [Unknown]
  - Bone disorder [Unknown]
  - Staphylococcal infection [Unknown]
  - Anxiety [Unknown]
